FAERS Safety Report 4589489-5 (Version None)
Quarter: 2005Q1

REPORT INFORMATION
  Report Type: 
  Country: None (occurrence: None)
  Receive Date: 20050216
  Receipt Date: 20050201
  Transmission Date: 20050727
  Serious: Yes (Hospitalization)
  Sender: FDA-Public Use
  Company Number: GXKR2005IT00532

PATIENT
  Age: 89 Year
  Sex: Female

DRUGS (5)
  1. TICLOPIDINE HCL [Suspect]
     Indication: ESSENTIAL THROMBOCYTHAEMIA
     Dosage: 500 MG
  2. ONCO-CARBIDE (HYDROXYCARBAMIDE) [Concomitant]
  3. ALLOPURINOL [Concomitant]
  4. DIPYRONE TAB [Concomitant]
  5. FUROSEMIDE [Concomitant]

REACTIONS (8)
  - ABDOMINAL HAEMATOMA [None]
  - ACUTE ABDOMEN [None]
  - ANAEMIA [None]
  - BODY TEMPERATURE INCREASED [None]
  - HYPOKALAEMIA [None]
  - HYPONATRAEMIA [None]
  - LEUKOCYTOSIS [None]
  - THROMBOCYTHAEMIA [None]
